FAERS Safety Report 8042268-9 (Version None)
Quarter: 2012Q1

REPORT INFORMATION
  Report Type: 
  Country: None (occurrence: None)
  Receive Date: 20120112
  Receipt Date: 20111121
  Transmission Date: 20120608
  Serious: Yes (Hospitalization)
  Sender: FDA-Public Use
  Company Number: UA-ROCHE-1011902

PATIENT
  Age: 53 Year
  Sex: Male
  Weight: 101 kg

DRUGS (11)
  1. INVESTIGATIONAL ANTINEOPLASTIC AGENT [Suspect]
     Route: 048
     Dates: start: 20110909, end: 20110929
  2. KARSIL [Concomitant]
     Route: 065
     Dates: start: 20110809, end: 20111010
  3. NEBIVOLOL HCL [Concomitant]
     Indication: HYPERTONIA
     Route: 065
     Dates: start: 20110825
  4. INVESTIGATIONAL ANTINEOPLASTIC AGENT [Suspect]
     Indication: CHRONIC LYMPHOCYTIC LEUKAEMIA
     Route: 048
     Dates: start: 20110831, end: 20110908
  5. INVESTIGATIONAL ANTINEOPLASTIC AGENT [Suspect]
     Dates: start: 20111103
  6. ENALAPRIL MALEATE [Concomitant]
     Indication: HYPERTONIA
     Route: 065
     Dates: start: 20110809, end: 20110824
  7. MABTHERA [Suspect]
     Route: 042
     Dates: start: 20110915, end: 20111006
  8. MABTHERA [Suspect]
     Indication: CHRONIC LYMPHOCYTIC LEUKAEMIA
     Route: 042
     Dates: start: 20110908, end: 20110908
  9. INVESTIGATIONAL ANTINEOPLASTIC AGENT [Suspect]
     Route: 048
     Dates: start: 20111005, end: 20111008
  10. ALLOPURINOL [Concomitant]
     Indication: PROPHYLAXIS
     Route: 065
     Dates: start: 20110831
  11. RAMIPRIL [Concomitant]
     Indication: HYPERTONIA
     Route: 065
     Dates: start: 20110825

REACTIONS (1)
  - HEPATITIS [None]
